FAERS Safety Report 7680437-8 (Version None)
Quarter: 2011Q3

REPORT INFORMATION
  Report Type: 
  Country: None (occurrence: None)
  Receive Date: 20110812
  Receipt Date: 20110808
  Transmission Date: 20111222
  Serious: Yes (Other)
  Sender: FDA-Public Use
  Company Number: AU-CEPHALON-2010001761

PATIENT
  Sex: Male

DRUGS (2)
  1. NITRAZEPAM [Concomitant]
  2. MODAFINIL [Suspect]
     Route: 048
     Dates: start: 20090720, end: 20090720

REACTIONS (13)
  - COGNITIVE DISORDER [None]
  - POLYURIA [None]
  - DYSPNOEA [None]
  - READING DISORDER [None]
  - FEELING COLD [None]
  - IRRITABILITY [None]
  - NEUROLOGICAL EXAMINATION ABNORMAL [None]
  - IMPATIENCE [None]
  - PARANOIA [None]
  - ARTHRALGIA [None]
  - VISUAL ACUITY REDUCED [None]
  - NAUSEA [None]
  - CHOKING SENSATION [None]
